FAERS Safety Report 5232324-2 (Version None)
Quarter: 2007Q1

REPORT INFORMATION
  Report Type: 
  Country: None (occurrence: None)
  Receive Date: 20070207
  Receipt Date: 20070205
  Transmission Date: 20070707
  Serious: No
  Sender: FDA-Public Use
  Company Number: US-ELI_LILLY_AND_COMPANY-US200601001090

PATIENT
  Age: 50 Year
  Sex: Male
  Weight: 104.31 kg

DRUGS (13)
  1. ARIPIPRAZOLE [Concomitant]
  2. NORVASC [Concomitant]
  3. BUPROPION HCL [Concomitant]
  4. CLONAZEPAM [Concomitant]
  5. COMBIVENT [Concomitant]
  6. TOPROL-XL [Concomitant]
  7. LIPITOR [Concomitant]
  8. LEXAPRO [Concomitant]
  9. PROTONIX [Concomitant]
  10. CELEXA [Concomitant]
  11. FLUOXETINE [Concomitant]
  12. ZYPREXA [Suspect]
     Indication: SCHIZOPHRENIA
     Dosage: 7.5 MG, DAILY (1/D)
     Route: 048
     Dates: start: 20000324
  13. ZYPREXA [Suspect]
     Dosage: 20 MG, DAILY (1/D)

REACTIONS (2)
  - DIABETES MELLITUS NON-INSULIN-DEPENDENT [None]
  - RECTAL HAEMORRHAGE [None]
